FAERS Safety Report 9334230 (Version 1)
Quarter: 2013Q2

REPORT INFORMATION
  Report Type: Spontaneous
  Country: US (occurrence: US)
  Receive Date: 20130606
  Receipt Date: 20130606
  Transmission Date: 20140414
  Serious: No
  Sender: FDA-Public Use
  Company Number: US-AMGEN-USASP2012078062

PATIENT
  Age: 77 Year
  Sex: Female

DRUGS (11)
  1. PROLIA [Suspect]
     Indication: OSTEOPOROSIS POSTMENOPAUSAL
     Dosage: UNK
     Dates: start: 2012
  2. NASACORT AQ [Concomitant]
     Dosage: UNK
  3. TRIAMTERENE/HCTZ [Concomitant]
     Dosage: UNK
  4. MUCINEX [Concomitant]
     Dosage: UNK
  5. HYDRALAZINE [Concomitant]
     Dosage: UNK
  6. METAMUCIL                          /00029101/ [Concomitant]
     Dosage: UNK
  7. CALTRATE SELECT [Concomitant]
     Dosage: UNK
  8. ONE A DAY WOMEN^S [Concomitant]
     Dosage: UNK
  9. TUMS                               /00193601/ [Concomitant]
     Dosage: UNK UNK, PRN
  10. TYLENOL                            /00020001/ [Concomitant]
     Dosage: UNK UNK, PRN
  11. OMEPRAZOLE [Concomitant]
     Dosage: UNK

REACTIONS (2)
  - Rash papular [Not Recovered/Not Resolved]
  - Pruritus [Not Recovered/Not Resolved]
